FAERS Safety Report 10557514 (Version 1)
Quarter: 2014Q4

REPORT INFORMATION
  Report Type: Spontaneous
  Country: FR (occurrence: FR)
  Receive Date: 20141031
  Receipt Date: 20141031
  Transmission Date: 20150529
  Serious: Yes (Other)
  Sender: FDA-Public Use
  Company Number: FR-GILEAD-2014-0120344

PATIENT
  Age: 21 Year
  Sex: Male

DRUGS (2)
  1. KALETRA [Suspect]
     Active Substance: LOPINAVIR\RITONAVIR
     Indication: EXPOSURE TO COMMUNICABLE DISEASE
     Dosage: UNK
     Route: 048
     Dates: start: 20140828, end: 20140829
  2. TRUVADA [Suspect]
     Active Substance: EMTRICITABINE\TENOFOVIR DISOPROXIL FUMARATE
     Indication: EXPOSURE TO COMMUNICABLE DISEASE
     Dosage: UNK
     Route: 048
     Dates: start: 20140828, end: 20140829

REACTIONS (3)
  - Vomiting [Recovered/Resolved]
  - Off label use [Recovered/Resolved]
  - Bilirubin conjugated increased [Recovered/Resolved]

NARRATIVE: CASE EVENT DATE: 20140829
